FAERS Safety Report 13210954 (Version 1)
Quarter: 2017Q1

REPORT INFORMATION
  Report Type: Spontaneous
  Country: US (occurrence: US)
  Receive Date: 20170209
  Receipt Date: 20170209
  Transmission Date: 20170428
  Serious: No
  Sender: FDA-Public Use
  Company Number: US-ALLERGAN-1660133US

PATIENT
  Sex: Female

DRUGS (4)
  1. RESTYLANE [Concomitant]
     Active Substance: HYALURONIC ACID
     Dosage: UNK
     Dates: start: 200911, end: 200911
  2. BOTOX COSMETIC [Suspect]
     Active Substance: ONABOTULINUMTOXINA
     Indication: SKIN WRINKLING
     Dosage: UNK, SINGLE
     Route: 030
     Dates: start: 201111, end: 201111
  3. XANAX [Concomitant]
     Active Substance: ALPRAZOLAM
     Indication: PRODUCT USED FOR UNKNOWN INDICATION
  4. PROZAC [Concomitant]
     Active Substance: FLUOXETINE HYDROCHLORIDE
     Indication: PRODUCT USED FOR UNKNOWN INDICATION

REACTIONS (32)
  - Food poisoning [Recovered/Resolved]
  - Hypokinesia [Unknown]
  - Paraesthesia [Not Recovered/Not Resolved]
  - Vulvovaginal mycotic infection [Recovered/Resolved]
  - Immunoglobulins increased [Unknown]
  - Increased upper airway secretion [Unknown]
  - Thinking abnormal [Not Recovered/Not Resolved]
  - Fungal infection [Not Recovered/Not Resolved]
  - Mental disorder [Not Recovered/Not Resolved]
  - Pain [Not Recovered/Not Resolved]
  - Head discomfort [Recovered/Resolved]
  - Paralysis [Recovered/Resolved]
  - Vasodilatation [Recovered/Resolved]
  - Lymphadenopathy [Unknown]
  - Rash [Not Recovered/Not Resolved]
  - Eyelid ptosis [Recovered/Resolved]
  - Sensation of blood flow [Recovered/Resolved]
  - Palpitations [Recovered/Resolved]
  - Swollen tongue [Unknown]
  - Secretion discharge [Unknown]
  - Tongue discolouration [Not Recovered/Not Resolved]
  - Chest discomfort [Unknown]
  - Tinnitus [Unknown]
  - Candida infection [Recovered/Resolved]
  - Abnormal palmar/plantar creases [Not Recovered/Not Resolved]
  - Staphylococcal infection [Unknown]
  - Ear discomfort [Unknown]
  - Skin lesion [Unknown]
  - Toxicity to various agents [Not Recovered/Not Resolved]
  - Muscle spasms [Not Recovered/Not Resolved]
  - Tongue disorder [Not Recovered/Not Resolved]
  - Hypotension [Unknown]

NARRATIVE: CASE EVENT DATE: 2009
